FAERS Safety Report 5973367-0 (Version None)
Quarter: 2008Q4

REPORT INFORMATION
  Report Type: 
  Country: None (occurrence: None)
  Receive Date: 20081201
  Receipt Date: 20081030
  Transmission Date: 20090506
  Serious: Yes (Hospitalization)
  Sender: FDA-Public Use
  Company Number: US-AMGEN-KDL304201

PATIENT
  Sex: Female
  Weight: 74.5 kg

DRUGS (1)
  1. ENBREL [Suspect]
     Indication: RHEUMATOID ARTHRITIS
     Route: 058
     Dates: start: 19980101

REACTIONS (5)
  - ANIMAL BITE [None]
  - JOINT SWELLING [None]
  - MOBILITY DECREASED [None]
  - RHEUMATOID ARTHRITIS [None]
  - SEPSIS [None]
